FAERS Safety Report 4963328-2 (Version None)
Quarter: 2006Q2

REPORT INFORMATION
  Report Type: 
  Country: None (occurrence: None)
  Receive Date: 20060404
  Receipt Date: 20060404
  Transmission Date: 20061013
  Serious: Yes (Disabling)
  Sender: FDA-Public Use
  Company Number: None

PATIENT
  Age: 78 Year
  Sex: Male
  Weight: 86 kg

DRUGS (2)
  1. EZETIMIBE    10MG    SCHERING [Suspect]
     Indication: CORONARY ARTERY DISEASE
     Dosage: 10MG   ONCE DAILY  PO
     Route: 048
     Dates: start: 20051129, end: 20060217
  2. EZETIMIBE    10MG    SCHERING [Suspect]
     Indication: HYPERCHOLESTEROLAEMIA
     Dosage: 10MG   ONCE DAILY  PO
     Route: 048
     Dates: start: 20051129, end: 20060217

REACTIONS (2)
  - ARTHRALGIA [None]
  - MYALGIA [None]
